FAERS Safety Report 12398169 (Version 1)
Quarter: 2016Q2

REPORT INFORMATION
  Report Type: Spontaneous
  Country: US (occurrence: US)
  Receive Date: 20160524
  Receipt Date: 20160524
  Transmission Date: 20160815
  Serious: No
  Sender: FDA-Public Use
  Company Number: US-MYLANLABS-2016M1005966

PATIENT
  Sex: Female

DRUGS (3)
  1. NIFEDIPINE. [Concomitant]
     Active Substance: NIFEDIPINE
     Dosage: QD
  2. FLUVASTATIN CAPSULES, USP [Suspect]
     Active Substance: FLUVASTATIN SODIUM
     Dosage: 40 MG, EVERY EVENING
     Route: 048
     Dates: start: 201602
  3. FLUVASTATIN CAPSULES, USP [Suspect]
     Active Substance: FLUVASTATIN SODIUM
     Indication: BLOOD CHOLESTEROL INCREASED
     Dosage: 40 MG EVERY EVENING
     Route: 048
     Dates: start: 20160201, end: 201602

REACTIONS (2)
  - Diarrhoea [Not Recovered/Not Resolved]
  - Flatulence [Not Recovered/Not Resolved]

NARRATIVE: CASE EVENT DATE: 20160203
